FAERS Safety Report 5143926-6 (Version None)
Quarter: 2006Q4

REPORT INFORMATION
  Report Type: 
  Country: None (occurrence: None)
  Receive Date: 20061030
  Receipt Date: 20061023
  Transmission Date: 20070319
  Serious: Yes (Hospitalization)
  Sender: FDA-Public Use
  Company Number: CERZ-11346

PATIENT
  Age: 61 Year
  Sex: Female
  Weight: 48.9885 kg

DRUGS (1)
  1. CEREZYME [Suspect]
     Indication: GAUCHER'S DISEASE
     Dosage: 2000 UNITS Q2WKS IV
     Route: 042
     Dates: start: 19971216

REACTIONS (2)
  - DEVICE FAILURE [None]
  - SURGICAL PROCEDURE REPEATED [None]
